FAERS Safety Report 13054526 (Version 1)
Quarter: 2016Q4

REPORT INFORMATION
  Report Type: Spontaneous
  Country: US (occurrence: US)
  Receive Date: 20161222
  Receipt Date: 20161222
  Transmission Date: 20170207
  Serious: Yes (Other)
  Sender: FDA-Public Use
  Company Number: US-AMGEN-USASP2016173142

PATIENT
  Age: 61 Year
  Sex: Female
  Weight: 77.55 kg

DRUGS (5)
  1. EFFIENT [Concomitant]
     Active Substance: PRASUGREL HYDROCHLORIDE
     Indication: THROMBOSIS PROPHYLAXIS
     Dosage: 5 MG, QHS
  2. KYNAMRO [Concomitant]
     Active Substance: MIPOMERSEN SODIUM
     Indication: BLOOD CHOLESTEROL ABNORMAL
     Dosage: 200 MG, QWK
  3. REPATHA [Suspect]
     Active Substance: EVOLOCUMAB
     Indication: TYPE IIA HYPERLIPIDAEMIA
     Dosage: 140 MG, Q2WK
     Route: 065
     Dates: start: 20160405
  4. NEXIUM [Concomitant]
     Active Substance: ESOMEPRAZOLE MAGNESIUM
     Indication: GASTROOESOPHAGEAL REFLUX DISEASE
     Dosage: 40 MG, QD
  5. BACLOFEN. [Concomitant]
     Active Substance: BACLOFEN
     Indication: OESOPHAGEAL SPASM
     Dosage: 10 MG (ONE AND HALF TABLET), QD

REACTIONS (6)
  - Vertigo [Not Recovered/Not Resolved]
  - Low density lipoprotein increased [Unknown]
  - Rhinitis [Unknown]
  - Rhinorrhoea [Not Recovered/Not Resolved]
  - Dizziness [Not Recovered/Not Resolved]
  - Drug hypersensitivity [Unknown]

NARRATIVE: CASE EVENT DATE: 2016
